FAERS Safety Report 7261563-4 (Version None)
Quarter: 2011Q1

REPORT INFORMATION
  Report Type: 
  Country: None (occurrence: None)
  Receive Date: 20110130
  Receipt Date: 20100923
  Transmission Date: 20110831
  Serious: No
  Sender: FDA-Public Use
  Company Number: US-ABBOTT-10P-163-0672750-00

PATIENT
  Age: 71 Year
  Sex: Female

DRUGS (3)
  1. UNKNOWN MEDICATION [Concomitant]
     Indication: DIABETES MELLITUS
  2. UNKNOWN MEDICATION [Concomitant]
     Indication: BLOOD CHOLESTEROL
  3. HUMIRA [Suspect]
     Indication: RHEUMATOID ARTHRITIS
     Dates: start: 20100301, end: 20100801

REACTIONS (4)
  - PRURITUS [None]
  - SKIN DISCOLOURATION [None]
  - RASH [None]
  - HYPERHIDROSIS [None]
